FAERS Safety Report 13577654 (Version 1)
Quarter: 2017Q2

REPORT INFORMATION
  Report Type: Spontaneous
  Country: IN (occurrence: IN)
  Receive Date: 20170524
  Receipt Date: 20170524
  Transmission Date: 20170830
  Serious: Yes (Other)
  Sender: FDA-Public Use
  Company Number: IN-FRESENIUS KABI-FK201704502

PATIENT
  Age: 25 Year
  Sex: Male

DRUGS (7)
  1. CISPLATIN. [Concomitant]
     Active Substance: CISPLATIN
     Indication: PRECURSOR B-LYMPHOBLASTIC LYMPHOMA
     Route: 042
  2. CYTARABINE. [Concomitant]
     Active Substance: CYTARABINE
     Indication: PRECURSOR B-LYMPHOBLASTIC LYMPHOMA
  3. IFOSFAMIDE (MANUFACTURER UNKNOWN) [Suspect]
     Active Substance: IFOSFAMIDE
     Indication: PRECURSOR B-LYMPHOBLASTIC LYMPHOMA
     Route: 042
  4. MESNA. [Concomitant]
     Active Substance: MESNA
     Indication: PRECURSOR B-LYMPHOBLASTIC LYMPHOMA
     Route: 042
  5. MITOXANTRONE [Concomitant]
     Active Substance: MITOXANTRONE HYDROCHLORIDE
     Indication: PRECURSOR B-LYMPHOBLASTIC LYMPHOMA
     Route: 042
  6. PREDNISOLONE. [Concomitant]
     Active Substance: PREDNISOLONE
     Indication: PRECURSOR B-LYMPHOBLASTIC LYMPHOMA
  7. ETOPOSIDE. [Concomitant]
     Active Substance: ETOPOSIDE
     Indication: PRECURSOR B-LYMPHOBLASTIC LYMPHOMA

REACTIONS (2)
  - Off label use [Unknown]
  - Toxic encephalopathy [Unknown]
